FAERS Safety Report 6680171-7 (Version None)
Quarter: 2010Q2

REPORT INFORMATION
  Report Type: 
  Country: None (occurrence: None)
  Receive Date: 20100413
  Receipt Date: 20100331
  Transmission Date: 20101027
  Serious: No
  Sender: FDA-Public Use
  Company Number: US-ELI_LILLY_AND_COMPANY-US201004000713

PATIENT
  Age: 65 Year
  Sex: Male

DRUGS (11)
  1. ZYPREXA [Suspect]
     Indication: BIPOLAR DISORDER
     Dosage: 10 MG, UNK
     Dates: start: 20050101
  2. CYMBALTA [Suspect]
     Indication: DEPRESSION
     Dosage: 30 MG, DAILY (1/D)
     Dates: start: 20050101
  3. CITALOPRAM HYDROBROMIDE [Concomitant]
  4. VITAMIN B-12 [Concomitant]
  5. FLONASE [Concomitant]
  6. FOSAMAX [Concomitant]
  7. OXYCODONE [Concomitant]
  8. SINGULAIR [Concomitant]
  9. WELCHOL [Concomitant]
  10. TRAMADOL HCL [Concomitant]
  11. COUMADIN [Concomitant]

REACTIONS (3)
  - EATING DISORDER [None]
  - HEPATIC ENZYME INCREASED [None]
  - OFF LABEL USE [None]
